FAERS Safety Report 9381761 (Version 1)
Quarter: 2013Q3

REPORT INFORMATION
  Report Type: Spontaneous
  Country: FR (occurrence: FR)
  Receive Date: 20130703
  Receipt Date: 20130703
  Transmission Date: 20140515
  Serious: Yes (Hospitalization)
  Sender: FDA-Public Use
  Company Number: FR-TEVA-416693ISR

PATIENT
  Age: 82 Year
  Sex: Male

DRUGS (8)
  1. RAMIPRIL TEVA 1.25 MG [Suspect]
  2. PANTOPRAZOLE PHR LAB 40 MG [Suspect]
  3. REPAGLINIDE TEVA 0.5 MG [Suspect]
  4. PREVISCAN [Concomitant]
  5. KARDEGIC [Concomitant]
  6. LASILIX [Concomitant]
  7. KALEORID [Concomitant]
  8. LANTUS [Concomitant]

REACTIONS (7)
  - Muscle spasms [Unknown]
  - Somnolence [Not Recovered/Not Resolved]
  - Red blood cell count decreased [Unknown]
  - Oxygen saturation decreased [Unknown]
  - Polydipsia [Not Recovered/Not Resolved]
  - Disorientation [Not Recovered/Not Resolved]
  - Somnolence [Not Recovered/Not Resolved]
